FAERS Safety Report 25981415 (Version 1)
Quarter: 2025Q4

REPORT INFORMATION
  Report Type: Spontaneous
  Country: US (occurrence: US)
  Receive Date: 20251030
  Receipt Date: 20251030
  Transmission Date: 20260118
  Serious: No
  Sender: GLAUKOS
  Company Number: US-GLK-000693

PATIENT

DRUGS (2)
  1. IDOSE TR [Suspect]
     Active Substance: TRAVOPROST
     Indication: Product used for unknown indication
     Dosage: OPERATED ON RIGHT EYE (OD)
     Route: 047
  2. IDOSE TR [Suspect]
     Active Substance: TRAVOPROST

REACTIONS (3)
  - Corneal oedema [Unknown]
  - Visual impairment [Unknown]
  - Corneal oedema [Unknown]
